FAERS Safety Report 24743834 (Version 1)
Quarter: 2024Q4

REPORT INFORMATION
  Report Type: Spontaneous
  Country: US (occurrence: None)
  Receive Date: 20241216
  Receipt Date: 20241216
  Transmission Date: 20250114
  Serious: Yes (Other)
  Sender: Public
  Company Number: None

PATIENT
  Sex: Female

DRUGS (2)
  1. REVLIMID [Suspect]
     Active Substance: LENALIDOMIDE
     Indication: Plasma cell myeloma
  2. REVLIMID [Concomitant]
     Active Substance: LENALIDOMIDE
     Dates: start: 20241105

REACTIONS (3)
  - Haemorrhage [None]
  - Visual acuity reduced transiently [None]
  - Vitreous floaters [None]
